FAERS Safety Report 15334684 (Version 1)
Quarter: 2018Q3

REPORT INFORMATION
  Report Type: Spontaneous
  Country: US (occurrence: US)
  Receive Date: 20180830
  Receipt Date: 20180830
  Transmission Date: 20181010
  Serious: Yes (Death, Other)
  Sender: FDA-Public Use
  Company Number: US-B.I. PHARMACEUTICALS,INC./RIDGEFIELD-2018-BI-043244

PATIENT
  Age: 74 Year
  Sex: Male

DRUGS (1)
  1. AGGRENOX [Suspect]
     Active Substance: ASPIRIN\DIPYRIDAMOLE
     Indication: PRODUCT USED FOR UNKNOWN INDICATION
     Dosage: FORM STRENGTH, UNIT AND DAILY DOSE: 25 MG / 200 MG; ACTION(S) TAKEN : NOT REPORTED
     Route: 065

REACTIONS (5)
  - Type 2 diabetes mellitus [Fatal]
  - Generalised oedema [Fatal]
  - Cardiopulmonary failure [Fatal]
  - Cardiac failure congestive [Fatal]
  - Renal cancer metastatic [Fatal]

NARRATIVE: CASE EVENT DATE: 20180706
